FAERS Safety Report 8811788 (Version 4)
Quarter: 2014Q2

REPORT INFORMATION
  Report Type: Spontaneous
  Country: US (occurrence: US)
  Receive Date: 20120927
  Receipt Date: 20140425
  Transmission Date: 20141212
  Serious: Yes (Life-Threatening, Hospitalization, Other)
  Sender: FDA-Public Use
  Company Number: US-ASTRAZENECA-2010SE42344

PATIENT
  Age: 66 Year
  Sex: Female
  Weight: 105.7 kg

DRUGS (19)
  1. NEXIUM [Suspect]
     Indication: GASTROOESOPHAGEAL REFLUX DISEASE
     Route: 048
     Dates: start: 2001
  2. NEXIUM [Suspect]
     Indication: GASTROOESOPHAGEAL REFLUX DISEASE
     Route: 048
     Dates: start: 2001
  3. NEXIUM IV [Suspect]
     Dosage: 2 DOSES DURING HOSPITALIZATION
     Route: 042
     Dates: start: 201006, end: 201006
  4. BACTRIM DS [Concomitant]
     Route: 048
  5. NORCO [Concomitant]
     Dosage: 5/325, 1-2 TABLETS EVERY FOUR HOURS AS NEEDED
     Route: 048
  6. EFFEXOR XR [Concomitant]
     Indication: ANXIETY
     Route: 048
     Dates: start: 2008
  7. EFFEXOR XR [Concomitant]
     Indication: DEPRESSION
     Route: 048
     Dates: start: 2008
  8. EFFEXOR XR [Concomitant]
     Indication: ANXIETY
     Route: 048
  9. EFFEXOR XR [Concomitant]
     Indication: DEPRESSION
     Route: 048
  10. MVI [Concomitant]
     Route: 048
  11. KLONOPIN [Concomitant]
     Indication: DEPRESSION
     Route: 048
  12. KLONOPIN [Concomitant]
     Indication: ANXIETY
     Route: 048
  13. KLONOPIN [Concomitant]
     Indication: DEPRESSION
     Route: 048
     Dates: start: 1999
  14. KLONOPIN [Concomitant]
     Indication: ANXIETY
     Route: 048
     Dates: start: 1999
  15. CELEBREX [Concomitant]
     Route: 048
  16. PROBIOTIC [Concomitant]
     Route: 048
  17. CA+VIT D [Concomitant]
     Route: 048
  18. CLARITIN [Concomitant]
     Route: 048
  19. PLAVIX [Concomitant]

REACTIONS (29)
  - Cardiac arrest [Unknown]
  - Chest pain [Unknown]
  - Postoperative thrombosis [Unknown]
  - Neuralgia [Unknown]
  - Nephrolithiasis [Unknown]
  - Urinary tract infection [Unknown]
  - Fall [Unknown]
  - Device breakage [Unknown]
  - Bone disorder [Unknown]
  - Gait disturbance [Unknown]
  - Infection [Unknown]
  - Femur fracture [Unknown]
  - Back pain [Unknown]
  - Calcium metabolism disorder [Unknown]
  - Feeling abnormal [Unknown]
  - Haemoglobin decreased [Unknown]
  - Haematocrit decreased [Unknown]
  - Herpes zoster [Unknown]
  - Urogenital haemorrhage [Unknown]
  - Rotator cuff syndrome [Unknown]
  - Tremor [Unknown]
  - Musculoskeletal disorder [Unknown]
  - Arthritis [Unknown]
  - Peripheral swelling [Unknown]
  - Exercise tolerance decreased [Unknown]
  - Pyrexia [Unknown]
  - Weight decreased [Unknown]
  - Arthralgia [Unknown]
  - Abdominal pain [Unknown]
